FAERS Safety Report 8357844-3 (Version None)
Quarter: 2012Q2

REPORT INFORMATION
  Report Type: 
  Country: None (occurrence: None)
  Receive Date: 20120511
  Receipt Date: 20120503
  Transmission Date: 20120825
  Serious: Yes (Hospitalization, Other)
  Sender: FDA-Public Use
  Company Number: 2012SP024067

PATIENT
  Age: 2 Year
  Sex: Female

DRUGS (1)
  1. CLARITIN-D 24 HOUR [Suspect]
     Indication: ACCIDENTAL DRUG INTAKE BY CHILD
     Dosage: PO
     Route: 048
     Dates: start: 20110824, end: 20110824

REACTIONS (2)
  - ACCIDENTAL DRUG INTAKE BY CHILD [None]
  - POISONING [None]
